FAERS Safety Report 9062822 (Version 1)
Quarter: 2013Q1

REPORT INFORMATION
  Report Type: Spontaneous
  Country: GR (occurrence: GR)
  Receive Date: 20130128
  Receipt Date: 20130128
  Transmission Date: 20140127
  Serious: Yes (Hospitalization, Other)
  Sender: FDA-Public Use
  Company Number: GR-JNJFOC-20130110459

PATIENT
  Age: 50 Year
  Sex: Female

DRUGS (4)
  1. REMICADE [Suspect]
     Indication: PSORIASIS
     Dosage: INFLIXIMAB WAS STARTED 6 YEARS AGO
     Route: 042
     Dates: start: 2007, end: 201212
  2. REMICADE [Suspect]
     Indication: PSORIATIC ARTHROPATHY
     Dosage: INFLIXIMAB WAS STARTED 6 YEARS AGO
     Route: 042
     Dates: start: 2007, end: 201212
  3. METHOTREXATE [Concomitant]
     Indication: PSORIATIC ARTHROPATHY
     Dosage: STARTED 6 YEARS AGO
     Route: 065
     Dates: start: 2007, end: 201212
  4. METHOTREXATE [Concomitant]
     Indication: PSORIASIS
     Dosage: STARTED 6 YEARS AGO
     Route: 065
     Dates: start: 2007, end: 201212

REACTIONS (1)
  - Hodgkin^s disease [Not Recovered/Not Resolved]
